FAERS Safety Report 21674466 (Version 5)
Quarter: 2023Q1

REPORT INFORMATION
  Report Type: Spontaneous
  Country: US (occurrence: US)
  Receive Date: 20221202
  Receipt Date: 20230130
  Transmission Date: 20230417
  Serious: No
  Sender: FDA-Public Use
  Company Number: US-BoehringerIngelheim-2022-BI-205936

PATIENT
  Age: 72 Year
  Sex: Male

DRUGS (1)
  1. PRADAXA [Suspect]
     Active Substance: DABIGATRAN ETEXILATE MESYLATE
     Indication: Atrial flutter
     Dosage: 1 CAPSULE
     Dates: start: 202204

REACTIONS (5)
  - Off label use [Unknown]
  - Drug ineffective [Unknown]
  - Haemorrhage [Unknown]
  - Contusion [Unknown]
  - Cataract [Unknown]

NARRATIVE: CASE EVENT DATE: 20220401
